FAERS Safety Report 19301040 (Version 2)
Quarter: 2021Q2

REPORT INFORMATION
  Report Type: Spontaneous
  Country: US (occurrence: US)
  Receive Date: 20210525
  Receipt Date: 20210623
  Transmission Date: 20210717
  Serious: No
  Sender: FDA-Public Use
  Company Number: US-TAKEDA-2021TUS030333

PATIENT
  Sex: Male
  Weight: 74 kg

DRUGS (2)
  1. IVERMECTIN. [Concomitant]
     Active Substance: IVERMECTIN
     Dosage: UNK
  2. ENTYVIO [Suspect]
     Active Substance: VEDOLIZUMAB
     Indication: CROHN^S DISEASE
     Dosage: 300 MILLIGRAM
     Route: 042
     Dates: start: 20210331

REACTIONS (2)
  - Rash vesicular [Recovered/Resolved]
  - Rash pruritic [Recovered/Resolved]
